FAERS Safety Report 5964001-4 (Version None)
Quarter: 2008Q4

REPORT INFORMATION
  Report Type: 
  Country: None (occurrence: None)
  Receive Date: 20081124
  Receipt Date: 20081113
  Transmission Date: 20090506
  Serious: Yes (Other)
  Sender: FDA-Public Use
  Company Number: ZA-ASTRAZENECA-2008SE05270

PATIENT
  Sex: Female

DRUGS (1)
  1. MERONEM [Suspect]
     Indication: PSEUDOMONAS INFECTION
     Route: 042

REACTIONS (1)
  - CONVULSION [None]
